FAERS Safety Report 6959311-8 (Version None)
Quarter: 2010Q3

REPORT INFORMATION
  Report Type: 
  Country: None (occurrence: None)
  Receive Date: 20100831
  Receipt Date: 20100730
  Transmission Date: 20110219
  Serious: No
  Sender: FDA-Public Use
  Company Number: US-PFIZER INC-2008154380

PATIENT
  Sex: Male

DRUGS (1)
  1. CAVERJECT [Suspect]
     Dosage: UNK
     Dates: start: 20080101

REACTIONS (5)
  - DRUG INEFFECTIVE [None]
  - ERECTILE DYSFUNCTION [None]
  - MEDICATION ERROR [None]
  - PENIS DISORDER [None]
  - TESTICULAR PAIN [None]
